FAERS Safety Report 7342516-4 (Version None)
Quarter: 2011Q1

REPORT INFORMATION
  Report Type: 
  Country: None (occurrence: None)
  Receive Date: 20110310
  Receipt Date: 20110307
  Transmission Date: 20110831
  Serious: No
  Sender: FDA-Public Use
  Company Number: US-PFIZER INC-2011049841

PATIENT
  Sex: Male
  Weight: 77.098 kg

DRUGS (4)
  1. EFFEXOR [Suspect]
     Indication: PANIC ATTACK
  2. ZOLOFT [Concomitant]
     Indication: PANIC ATTACK
  3. ZOLOFT [Concomitant]
     Indication: STRESS
     Dosage: UNK
  4. EFFEXOR [Suspect]
     Indication: STRESS
     Dosage: 75 MG, 1X/DAY
     Route: 048
     Dates: start: 20010101, end: 20080101

REACTIONS (1)
  - EJACULATION DISORDER [None]
